FAERS Safety Report 19742161 (Version 1)
Quarter: 2021Q3

REPORT INFORMATION
  Report Type: Spontaneous
  Country: DE (occurrence: DE)
  Receive Date: 20210825
  Receipt Date: 20210825
  Transmission Date: 20211014
  Serious: Yes (Other)
  Sender: FDA-Public Use
  Company Number: DE-ASTELLAS-2021US011142

PATIENT
  Age: 74 Year
  Sex: Male

DRUGS (2)
  1. BETMIGA [Suspect]
     Active Substance: MIRABEGRON
     Indication: PRODUCT USED FOR UNKNOWN INDICATION
     Route: 065
  2. BETMIGA [Suspect]
     Active Substance: MIRABEGRON
     Indication: PRODUCT USED FOR UNKNOWN INDICATION
     Dosage: 25 MG, ONCE DAILY (50MG TABLET DIVIDED IN HALF)
     Route: 065

REACTIONS (4)
  - Product availability issue [Unknown]
  - Urethral stenosis [Unknown]
  - Urinary tract infection [Unknown]
  - Wrong technique in product usage process [Unknown]
